FAERS Safety Report 18260215 (Version 1)
Quarter: 2020Q3

REPORT INFORMATION
  Report Type: Spontaneous
  Country: US (occurrence: US)
  Receive Date: 20200913
  Receipt Date: 20200913
  Transmission Date: 20201103
  Serious: No
  Sender: FDA-Public Use
  Company Number: US-GLENMARK PHARMACEUTICALS-2020GMK048848

PATIENT

DRUGS (2)
  1. LIDOCAINE OINTMENT USP 5% [Suspect]
     Active Substance: LIDOCAINE
     Indication: VULVOVAGINAL PAIN
  2. LIDOCAINE OINTMENT USP 5% [Suspect]
     Active Substance: LIDOCAINE
     Indication: LICHEN SCLEROSUS
     Dosage: UNK UNK, PRN (1 TO 4 TIMES DAILY AS NEEDED)
     Route: 061
     Dates: start: 20200707, end: 20200719

REACTIONS (4)
  - Condition aggravated [Unknown]
  - Product administered at inappropriate site [Unknown]
  - Product use in unapproved indication [Unknown]
  - Vulvovaginal pain [Unknown]

NARRATIVE: CASE EVENT DATE: 202007
